FAERS Safety Report 14983697 (Version 3)
Quarter: 2018Q4

REPORT INFORMATION
  Report Type: Spontaneous
  Country: US (occurrence: US)
  Receive Date: 20180607
  Receipt Date: 20181115
  Transmission Date: 20190204
  Serious: No
  Sender: FDA-Public Use
  Company Number: US-PFIZER INC-2018224628

PATIENT
  Age: 74 Year
  Sex: Female

DRUGS (1)
  1. TIKOSYN [Suspect]
     Active Substance: DOFETILIDE
     Dosage: 1 MG, DAILY
     Dates: start: 201802, end: 20180327

REACTIONS (6)
  - Nausea [Not Recovered/Not Resolved]
  - Malaise [Not Recovered/Not Resolved]
  - Anosmia [Unknown]
  - Muscle spasms [Unknown]
  - Parosmia [Unknown]
  - Ageusia [Unknown]

NARRATIVE: CASE EVENT DATE: 2018
